FAERS Safety Report 22664387 (Version 2)
Quarter: 2025Q3

REPORT INFORMATION
  Report Type: Spontaneous
  Country: US (occurrence: US)
  Receive Date: 20230703
  Receipt Date: 20250703
  Transmission Date: 20251021
  Serious: Yes (Death, Life-Threatening, Hospitalization)
  Sender: Steriscience PTE
  Company Number: US-STERISCIENCE B.V.-2023-ST-001640

PATIENT
  Age: 63 Year
  Sex: Female

DRUGS (1)
  1. METOPROLOL [Suspect]
     Active Substance: METOPROLOL
     Indication: Product used for unknown indication
     Route: 065

REACTIONS (3)
  - Suicide attempt [Fatal]
  - Cardiogenic shock [Fatal]
  - Overdose [Fatal]
